FAERS Safety Report 7214135-1 (Version None)
Quarter: 2011Q1

REPORT INFORMATION
  Report Type: 
  Country: None (occurrence: None)
  Receive Date: 20110107
  Receipt Date: 20101224
  Transmission Date: 20110831
  Serious: Yes (Hospitalization)
  Sender: FDA-Public Use
  Company Number: FR-CELGENEUS-056-21880-10122856

PATIENT
  Sex: Female

DRUGS (3)
  1. REVLIMID [Suspect]
     Route: 048
     Dates: start: 20090123
  2. ARANESP [Concomitant]
     Route: 065
     Dates: start: 20050101
  3. VITAMIN B-12 [Concomitant]
     Route: 065
     Dates: start: 20050101

REACTIONS (1)
  - CARCINOID TUMOUR OF THE STOMACH [None]
